FAERS Safety Report 6241063-0 (Version None)
Quarter: 2009Q2

REPORT INFORMATION
  Report Type: 
  Country: None (occurrence: None)
  Receive Date: 20090623
  Receipt Date: 20090619
  Transmission Date: 20091009
  Serious: No
  Sender: FDA-Public Use
  Company Number: US-B.I. PHARMACEUTICALS,INC./RIDGEFIELD-2009-BP-07492BP

PATIENT
  Sex: Female

DRUGS (5)
  1. ZANTAC 75 [Suspect]
     Indication: HYPERCHLORHYDRIA
     Dosage: 150 MG
     Route: 048
     Dates: start: 20090618
  2. IBUPROFEN [Suspect]
     Indication: NECK PAIN
  3. TENORMIN [Concomitant]
     Indication: HYPERTENSION
  4. NORVASC [Concomitant]
     Indication: HYPERTENSION
  5. DIOVAN HCT [Concomitant]
     Indication: HYPERTENSION

REACTIONS (1)
  - DRUG INEFFECTIVE [None]
